FAERS Safety Report 9528248 (Version 1)
Quarter: 2013Q1

REPORT INFORMATION
  Report Type: Spontaneous
  Country: US (occurrence: None)
  Receive Date: 20130322
  Receipt Date: 20130322
  Transmission Date: 20140127
  Serious: Yes (Hospitalization)
  Sender: FDA-Public Use
  Company Number: PHEH2012US000940

PATIENT
  Age: 57 Year
  Sex: Female

DRUGS (1)
  1. SANDIMMUNE [Suspect]
     Indication: LUNG TRANSPLANT
     Route: 048
     Dates: start: 20110930

REACTIONS (2)
  - Pneumonia [None]
  - Transplant rejection [None]
